FAERS Safety Report 6073927-5 (Version None)
Quarter: 2009Q1

REPORT INFORMATION
  Report Type: 
  Country: None (occurrence: None)
  Receive Date: 20090211
  Receipt Date: 20090204
  Transmission Date: 20090719
  Serious: Yes (Other)
  Sender: FDA-Public Use
  Company Number: US-AMGEN-US332036

PATIENT
  Sex: Female

DRUGS (3)
  1. NPLATE [Suspect]
     Indication: IDIOPATHIC THROMBOCYTOPENIC PURPURA
  2. DEXAMETHASONE TAB [Concomitant]
  3. REVLIMID [Concomitant]

REACTIONS (2)
  - CHILLS [None]
  - HYPOAESTHESIA [None]
